FAERS Safety Report 22088203 (Version 1)
Quarter: 2023Q1

REPORT INFORMATION
  Report Type: Spontaneous
  Country: US (occurrence: US)
  Receive Date: 20230313
  Receipt Date: 20230313
  Transmission Date: 20230417
  Serious: No
  Sender: FDA-Public Use
  Company Number: US-Blueprint Medicines Corporation-942

PATIENT
  Sex: Male

DRUGS (1)
  1. AYVAKIT [Suspect]
     Active Substance: AVAPRITINIB
     Indication: Gastrointestinal stromal tumour
     Route: 065
     Dates: start: 20210104

REACTIONS (5)
  - Insomnia [Unknown]
  - Memory impairment [Unknown]
  - Fatigue [Unknown]
  - Peripheral swelling [Recovering/Resolving]
  - Product dose omission issue [Unknown]
